FAERS Safety Report 15283330 (Version 5)
Quarter: 2018Q4

REPORT INFORMATION
  Report Type: Spontaneous
  Country: US (occurrence: US)
  Receive Date: 20180816
  Receipt Date: 20181030
  Transmission Date: 20190204
  Serious: Yes (Other)
  Sender: FDA-Public Use
  Company Number: US-PFIZER INC-2018326802

PATIENT
  Age: 67 Year
  Sex: Female
  Weight: 81.18 kg

DRUGS (11)
  1. GABAPENTIN. [Concomitant]
     Active Substance: GABAPENTIN
     Dosage: UNK
  2. OXYBUTYNIN. [Concomitant]
     Active Substance: OXYBUTYNIN CHLORIDE
     Dosage: UNK
  3. OTEZLA [Concomitant]
     Active Substance: APREMILAST
     Dosage: UNK
  4. SUTENT [Suspect]
     Active Substance: SUNITINIB MALATE
     Indication: RENAL CELL CARCINOMA
     Dosage: 50 MG, CYCLIC (DAILY, 28 DAYS ON/14 DAYS OFF)
     Dates: start: 20180729
  5. COZAAR [Concomitant]
     Active Substance: LOSARTAN POTASSIUM
     Dosage: UNK
  6. IMODIUM [Concomitant]
     Active Substance: LOPERAMIDE HYDROCHLORIDE
     Dosage: UNK
  7. SUTENT [Suspect]
     Active Substance: SUNITINIB MALATE
     Dosage: 37.5 MG, CYCLIC (28 DAYS ON / 14 DAYS OFF)
     Dates: start: 20180729
  8. BABY ASPIRIN [Concomitant]
     Active Substance: ASPIRIN
     Dosage: UNK
  9. LASIX [FUROSEMIDE SODIUM] [Concomitant]
     Dosage: UNK
  10. SIMVASTATIN. [Concomitant]
     Active Substance: SIMVASTATIN
     Dosage: UNK
  11. TYLENOL [Concomitant]
     Active Substance: ACETAMINOPHEN
     Dosage: UNK

REACTIONS (34)
  - Condition aggravated [Unknown]
  - Product use issue [Unknown]
  - Vomiting [Unknown]
  - Plicated tongue [Unknown]
  - Constipation [Unknown]
  - Tongue discomfort [Not Recovered/Not Resolved]
  - Blister [Unknown]
  - Increased appetite [Unknown]
  - Oral pain [Unknown]
  - Mouth ulceration [Recovered/Resolved]
  - Fatigue [Unknown]
  - Nausea [Unknown]
  - Rash [Unknown]
  - Skin lesion [Unknown]
  - Swelling face [Unknown]
  - Oral discomfort [Recovering/Resolving]
  - Feeding disorder [Unknown]
  - Weight decreased [Recovering/Resolving]
  - Tongue disorder [Recovering/Resolving]
  - Hunger [Unknown]
  - Skin disorder [Unknown]
  - Pruritus [Unknown]
  - Rash macular [Unknown]
  - Erythema [Unknown]
  - Speech disorder [Unknown]
  - Acne [Unknown]
  - Neuropathy peripheral [Unknown]
  - Glossodynia [Unknown]
  - Allergy to chemicals [Unknown]
  - Diarrhoea [Not Recovered/Not Resolved]
  - Pain in extremity [Unknown]
  - Myalgia [Unknown]
  - Alopecia [Unknown]
  - Palmar erythema [Unknown]

NARRATIVE: CASE EVENT DATE: 2018
